FAERS Safety Report 13839406 (Version 2)
Quarter: 2017Q3

REPORT INFORMATION
  Report Type: Spontaneous
  Country: DE (occurrence: DE)
  Receive Date: 20170807
  Receipt Date: 20170818
  Transmission Date: 20171127
  Serious: Yes (Life-Threatening, Hospitalization, Other)
  Sender: FDA-Public Use
  Company Number: DE-DRREDDYS-USA/GER/17/0092258

PATIENT
  Age: 19 Year
  Sex: Female

DRUGS (1)
  1. VENLAFAXINE [Suspect]
     Active Substance: VENLAFAXINE HYDROCHLORIDE
     Indication: PRODUCT USED FOR UNKNOWN INDICATION
     Route: 048

REACTIONS (13)
  - Toxicity to various agents [Recovering/Resolving]
  - Acute kidney injury [Recovering/Resolving]
  - Generalised tonic-clonic seizure [Unknown]
  - Gastrointestinal haemorrhage [Unknown]
  - Suicide attempt [Unknown]
  - Stress cardiomyopathy [Recovered/Resolved]
  - Lactic acidosis [Recovered/Resolved]
  - Cardiogenic shock [Recovered/Resolved]
  - Ventricular tachycardia [Recovered/Resolved]
  - Disseminated intravascular coagulation [Unknown]
  - Multiple organ dysfunction syndrome [Recovering/Resolving]
  - Cardiac arrest [Recovered/Resolved]
  - Acute hepatic failure [Recovering/Resolving]
